FAERS Safety Report 21421988 (Version 1)
Quarter: 2022Q4

REPORT INFORMATION
  Report Type: Spontaneous
  Country: GB (occurrence: None)
  Receive Date: 20221007
  Receipt Date: 20221007
  Transmission Date: 20230113
  Serious: Yes (Life-Threatening, Hospitalization)
  Sender: FDA-Public Use
  Company Number: 2022A337614

PATIENT
  Age: 55 Year
  Sex: Female
  Weight: 102 kg

DRUGS (6)
  1. DAPAGLIFLOZIN [Suspect]
     Active Substance: DAPAGLIFLOZIN
     Indication: Diabetes mellitus
     Dosage: 5MG
     Route: 065
     Dates: start: 20220722, end: 20220919
  2. ACCORD-UK ACICLOVIR [Concomitant]
     Indication: Genital herpes
     Route: 065
     Dates: start: 20201001
  3. ALOGLIPTIN [Concomitant]
     Active Substance: ALOGLIPTIN
     Indication: Type 2 diabetes mellitus
     Route: 065
     Dates: start: 20201001
  4. ATORVASTATIN [Concomitant]
     Active Substance: ATORVASTATIN
     Indication: Hypercholesterolaemia
     Route: 065
     Dates: start: 20201001
  5. MERCURY PHARMS FERROUS FUMARATE [Concomitant]
     Indication: Blood iron decreased
     Route: 065
     Dates: start: 20180101
  6. METFORMIN [Concomitant]
     Active Substance: METFORMIN HYDROCHLORIDE
     Indication: Type 2 diabetes mellitus
     Route: 065
     Dates: start: 20201001

REACTIONS (1)
  - Necrotising fasciitis [Recovering/Resolving]

NARRATIVE: CASE EVENT DATE: 20220919
